FAERS Safety Report 21014980 (Version 1)
Quarter: 2022Q2

REPORT INFORMATION
  Report Type: Spontaneous
  Country: US (occurrence: US)
  Receive Date: 20220628
  Receipt Date: 20220628
  Transmission Date: 20220721
  Serious: Yes (Other)
  Sender: FDA-Public Use
  Company Number: US-BRISTOL-MYERS SQUIBB COMPANY-2022-060423

PATIENT
  Age: 81 Year
  Sex: Female
  Weight: 77 kg

DRUGS (10)
  1. REVLIMID [Suspect]
     Active Substance: LENALIDOMIDE
     Indication: Plasma cell myeloma
     Route: 048
     Dates: start: 20220414
  2. REVLIMID [Suspect]
     Active Substance: LENALIDOMIDE
     Route: 048
     Dates: start: 20220408, end: 20220502
  3. REVLIMID [Suspect]
     Active Substance: LENALIDOMIDE
     Route: 048
     Dates: start: 20220505, end: 20220513
  4. REVLIMID [Suspect]
     Active Substance: LENALIDOMIDE
     Route: 048
     Dates: start: 20220519, end: 20220608
  5. REVLIMID [Suspect]
     Active Substance: LENALIDOMIDE
     Route: 048
     Dates: start: 20220502, end: 20220519
  6. REVLIMID [Suspect]
     Active Substance: LENALIDOMIDE
     Route: 048
     Dates: start: 20220608
  7. dilTlAZem HCI [Concomitant]
     Indication: Product used for unknown indication
     Route: 048
     Dates: start: 20220408
  8. OMEPRAZOLE [Concomitant]
     Active Substance: OMEPRAZOLE
     Indication: Product used for unknown indication
     Dosage: OMEPRAZOLE ORAL CAPSULE DELAYED REL
     Route: 048
     Dates: start: 20220408
  9. HERBALS\TURMERIC [Concomitant]
     Active Substance: HERBALS\TURMERIC
     Indication: Product used for unknown indication
     Dates: start: 20220412
  10. LIDOCAINE [Concomitant]
     Active Substance: LIDOCAINE
     Indication: Product used for unknown indication
     Dosage: 1ST ME+-PATCH/ LIDOCAINE EXTE,?DOSE 4-0, 0.25-5, PRN
     Dates: start: 20220412

REACTIONS (3)
  - Neutropenia [Recovering/Resolving]
  - Swelling face [Recovering/Resolving]
  - Periorbital swelling [Unknown]

NARRATIVE: CASE EVENT DATE: 20220613
